FAERS Safety Report 17799423 (Version 1)
Quarter: 2020Q2

REPORT INFORMATION
  Report Type: Spontaneous
  Country: BE (occurrence: BE)
  Receive Date: 20200518
  Receipt Date: 20200518
  Transmission Date: 20200714
  Serious: Yes (Other)
  Sender: FDA-Public Use
  Company Number: BE-JNJFOC-20200333700

PATIENT
  Age: 62 Year
  Sex: Male
  Weight: 101 kg

DRUGS (6)
  1. STELARA [Suspect]
     Active Substance: USTEKINUMAB
  2. EMCONCOR [Concomitant]
     Active Substance: BISOPROLOL FUMARATE
  3. LIPITOR [Concomitant]
     Active Substance: ATORVASTATIN CALCIUM
     Indication: HYPERCHOLESTEROLAEMIA
  4. PANTOMED                           /00178901/ [Concomitant]
     Active Substance: DEXPANTHENOL
     Indication: GASTRITIS
  5. STELARA [Suspect]
     Active Substance: USTEKINUMAB
     Indication: PSORIATIC ARTHROPATHY
     Route: 058
     Dates: start: 20170701
  6. ASAFLOW [Concomitant]
     Active Substance: ASPIRIN
     Indication: CEREBROVASCULAR ACCIDENT PROPHYLAXIS

REACTIONS (4)
  - Psoriatic arthropathy [Unknown]
  - Drug ineffective [Unknown]
  - Synovitis [Unknown]
  - Psoriasis [Unknown]
